FAERS Safety Report 11325269 (Version 2)
Quarter: 2015Q3

REPORT INFORMATION
  Report Type: Spontaneous
  Country: US (occurrence: US)
  Receive Date: 20150730
  Receipt Date: 20150813
  Transmission Date: 20151125
  Serious: Yes (Other)
  Sender: FDA-Public Use
  Company Number: US-CELGENEUS-USA-2014101528

PATIENT
  Age: 64 Year
  Sex: Female

DRUGS (2)
  1. POMALYST [Suspect]
     Active Substance: POMALIDOMIDE
     Route: 048
     Dates: start: 20150113, end: 20150620
  2. POMALYST [Suspect]
     Active Substance: POMALIDOMIDE
     Indication: PLASMA CELL MYELOMA
     Route: 048
     Dates: start: 201408

REACTIONS (9)
  - Chest pain [Recovered/Resolved]
  - Abdominal distension [Unknown]
  - Rash pruritic [Recovered/Resolved]
  - Rash pruritic [Recovered/Resolved]
  - Pain in extremity [Unknown]
  - Erythema [Unknown]
  - Peripheral swelling [Recovered/Resolved]
  - Chest pain [Unknown]
  - Oedema peripheral [Unknown]

NARRATIVE: CASE EVENT DATE: 2014
